FAERS Safety Report 7783036-2 (Version None)
Quarter: 2011Q3

REPORT INFORMATION
  Report Type: 
  Country: None (occurrence: None)
  Receive Date: 20110928
  Receipt Date: 20110926
  Transmission Date: 20111222
  Serious: No
  Sender: FDA-Public Use
  Company Number: US-PFIZER INC-2011229869

PATIENT
  Sex: Female
  Weight: 104 kg

DRUGS (2)
  1. CHANTIX [Suspect]
     Indication: SMOKING CESSATION THERAPY
     Dosage: UNK
     Route: 048
     Dates: start: 20110914, end: 20110919
  2. MULTI-VITAMINS [Concomitant]
     Dosage: UNK

REACTIONS (3)
  - MALAISE [None]
  - DEPRESSED MOOD [None]
  - NAUSEA [None]
